FAERS Safety Report 10961558 (Version 1)
Quarter: 2015Q1

REPORT INFORMATION
  Report Type: Spontaneous
  Country: US (occurrence: None)
  Receive Date: 20150326
  Receipt Date: 20150326
  Transmission Date: 20150721
  Serious: No
  Sender: FDA-Public Use
  Company Number: None

PATIENT
  Age: 62 Year
  Sex: Female
  Weight: 56.7 kg

DRUGS (2)
  1. CELECOXIB. [Suspect]
     Active Substance: CELECOXIB
     Indication: FIBROMYALGIA
     Dosage: 1 PILL DAILY
     Route: 048
     Dates: start: 20150103, end: 20150325
  2. CELECOXIB. [Suspect]
     Active Substance: CELECOXIB
     Indication: RHEUMATOID ARTHRITIS
     Dosage: 1 PILL DAILY
     Route: 048
     Dates: start: 20150103, end: 20150325

REACTIONS (5)
  - Joint stiffness [None]
  - Pain [None]
  - Product quality issue [None]
  - Product substitution issue [None]
  - Gait disturbance [None]

NARRATIVE: CASE EVENT DATE: 20150114
